FAERS Safety Report 23050652 (Version 1)
Quarter: 2023Q4

REPORT INFORMATION
  Report Type: Report from Study
  Country: US (occurrence: US)
  Receive Date: 20231010
  Receipt Date: 20231010
  Transmission Date: 20240109
  Serious: No
  Sender: FDA-Public Use
  Company Number: US-BIOVITRUM-2023-US-015583

PATIENT
  Age: 46 Year
  Sex: Male

DRUGS (1)
  1. KINERET [Suspect]
     Active Substance: ANAKINRA
     Indication: Still^s disease
     Dosage: 100 MG DAILY
     Route: 058
     Dates: start: 20190416

REACTIONS (6)
  - Pyrexia [Unknown]
  - Illness [Unknown]
  - Product dose omission issue [Unknown]
  - Rash macular [Unknown]
  - Lymphadenopathy [Unknown]
  - Limb injury [Unknown]

NARRATIVE: CASE EVENT DATE: 20220822
